FAERS Safety Report 9005187 (Version 1)
Quarter: 2013Q1

REPORT INFORMATION
  Report Type: Spontaneous
  Country: US (occurrence: None)
  Receive Date: 20130107
  Receipt Date: 20130107
  Transmission Date: 20140127
  Serious: Yes (Hospitalization)
  Sender: FDA-Public Use
  Company Number: None

PATIENT
  Age: 50 Year
  Sex: Male

DRUGS (1)
  1. TORSEMIDE [Suspect]
     Indication: CARDIAC FAILURE CONGESTIVE
     Dosage: 4 TABS 80 MG ORAL TWICE A DAY
     Route: 048
     Dates: start: 20121218, end: 20121222

REACTIONS (4)
  - Product substitution issue [None]
  - Product quality issue [None]
  - Weight increased [None]
  - Drug ineffective [None]
